FAERS Safety Report 24279986 (Version 2)
Quarter: 2024Q3

REPORT INFORMATION
  Report Type: Spontaneous
  Country: US (occurrence: US)
  Receive Date: 20240904
  Receipt Date: 20240917
  Transmission Date: 20241017
  Serious: No
  Sender: BIOGEN
  Company Number: US-BIOGEN-2024BI01280045

PATIENT
  Age: 55 Year
  Sex: Male

DRUGS (1)
  1. PLEGRIDY [Suspect]
     Active Substance: PEGINTERFERON BETA-1A
     Indication: Multiple sclerosis
     Route: 050
     Dates: start: 20240814

REACTIONS (2)
  - Cognitive disorder [Unknown]
  - Visual impairment [Unknown]

NARRATIVE: CASE EVENT DATE: 20240801
